FAERS Safety Report 21058540 (Version 1)
Quarter: 2022Q3

REPORT INFORMATION
  Report Type: Spontaneous
  Country: FR (occurrence: FR)
  Receive Date: 20220708
  Receipt Date: 20220708
  Transmission Date: 20221027
  Serious: Yes (Life-Threatening, Other)
  Sender: FDA-Public Use
  Company Number: None

PATIENT

DRUGS (1)
  1. LAMICTAL [Suspect]
     Active Substance: LAMOTRIGINE
     Indication: Epilepsy
     Dosage: UNK (1 TAB/D THEN INCREASE TO 2 TABS/D)
     Route: 048
     Dates: start: 20200121, end: 20200206

REACTIONS (1)
  - Stevens-Johnson syndrome [Recovered/Resolved]

NARRATIVE: CASE EVENT DATE: 20200205
